FAERS Safety Report 14779487 (Version 2)
Quarter: 2018Q2

REPORT INFORMATION
  Report Type: Spontaneous
  Country: ES (occurrence: ES)
  Receive Date: 20180419
  Receipt Date: 20180518
  Transmission Date: 20180711
  Serious: Yes (Hospitalization, Other)
  Sender: FDA-Public Use
  Company Number: ES-IMPAX LABORATORIES, INC-2018-IPXL-01243

PATIENT
  Age: 43 Year
  Sex: Male

DRUGS (4)
  1. IRBESARTAN. [Concomitant]
     Active Substance: IRBESARTAN
     Indication: HYPERTENSION
     Dosage: UNK
     Route: 065
  2. CHLOROQUINE PHOSPHATE. [Suspect]
     Active Substance: CHLOROQUINE PHOSPHATE
     Indication: MALARIA
     Dosage: UNK
     Route: 048
  3. INSULIN [Concomitant]
     Active Substance: INSULIN NOS
     Indication: DIABETES MELLITUS
     Dosage: UNK
     Route: 065
  4. PRIMAQUINE [Suspect]
     Active Substance: PRIMAQUINE PHOSPHATE
     Indication: MALARIA
     Dosage: UNK
     Route: 048

REACTIONS (12)
  - Acute respiratory distress syndrome [Recovered/Resolved]
  - Hypertensive cardiomyopathy [Unknown]
  - Atelectasis [Recovered/Resolved]
  - Renal impairment [Recovering/Resolving]
  - Pneumonia [Recovered/Resolved]
  - Pneumonia acinetobacter [Recovered/Resolved]
  - Hypotension [Unknown]
  - Generalised oedema [Unknown]
  - Pulmonary oedema [Recovered/Resolved]
  - Anaemia [Unknown]
  - Pyrexia [Unknown]
  - Pleural effusion [Recovered/Resolved]
